FAERS Safety Report 8740871 (Version 2)
Quarter: 2013Q4

REPORT INFORMATION
  Report Type: Report from Study
  Country: JP (occurrence: JP)
  Receive Date: 20120823
  Receipt Date: 20131108
  Transmission Date: 20140711
  Serious: Yes (Hospitalization)
  Sender: FDA-Public Use
  Company Number: JP-009507513-2012SP022014

PATIENT
  Age: 61 Year
  Sex: Male
  Weight: 71 kg

DRUGS (47)
  1. PEGINTRON [Suspect]
     Indication: HEPATITIS C
     Dosage: 100MCG/WEEK
     Route: 058
     Dates: start: 20120222
  2. REBETOL [Suspect]
     Indication: HEPATITIS C
     Dosage: 800 MG, QD
     Route: 048
     Dates: start: 20120222, end: 20120302
  3. REBETOL [Suspect]
     Dosage: 400 MG, QD
     Route: 048
     Dates: start: 20120303, end: 20120313
  4. REBETOL [Suspect]
     Dosage: 200 MG, QD
     Route: 048
     Dates: start: 20120314, end: 20120410
  5. REBETOL [Suspect]
     Dosage: 200 MG, QD
     Route: 048
     Dates: start: 20120502, end: 20120516
  6. REBETOL [Suspect]
     Dosage: 400 MG, QD
     Route: 048
     Dates: start: 20120517
  7. ANTIVIRAL (UNSPECIFIED) [Suspect]
     Indication: HEPATITIS C
     Dosage: 2250 MG, QD
     Route: 048
     Dates: start: 20120222, end: 20120302
  8. ANTIVIRAL (UNSPECIFIED) [Suspect]
     Dosage: 1500 MG, QD
     Route: 048
     Dates: start: 20120303, end: 20120328
  9. ANTIVIRAL (UNSPECIFIED) [Suspect]
     Dosage: 1000 MG, QD
     Route: 048
     Dates: start: 20120329, end: 20120411
  10. BAYASPIRIN [Concomitant]
     Indication: CEREBRAL INFARCTION
     Dosage: 100 MG, QD
     Route: 048
  11. BAYASPIRIN [Concomitant]
     Dosage: 100 MG, ONCE
     Route: 048
  12. WARFARIN POTASSIUM [Concomitant]
     Indication: CEREBRAL INFARCTION
     Dosage: 3.25 MG, QD
     Route: 048
     Dates: end: 20120404
  13. WARFARIN POTASSIUM [Concomitant]
     Indication: CEREBRAL INFARCTION
     Dosage: 2.25 MG, QD
     Route: 048
     Dates: start: 20120405, end: 20120418
  14. NORVASC [Concomitant]
     Indication: HYPERTENSION
     Dosage: 10 MG, QD
     Route: 048
     Dates: end: 20120318
  15. NORVASC [Concomitant]
     Indication: HYPERTENSION
     Dosage: 5 MG, QD
     Route: 048
     Dates: start: 20120319
  16. LOCHOL (FLUVASTATIN SODIUM) [Concomitant]
     Indication: CEREBRAL INFARCTION
     Dosage: 20 MG, QD
     Route: 048
  17. IRBESARTAN [Concomitant]
     Indication: HYPERTENSION
     Dosage: UNK, UNKNOWN
     Route: 048
  18. LOCOID [Concomitant]
     Indication: ECZEMA
     Dosage: UNK, UNKNOWN
     Route: 061
  19. LOCOID [Concomitant]
     Dosage: UNK
     Route: 061
  20. NERISONA [Concomitant]
     Indication: ECZEMA
     Dosage: UNK, UNKNOWN
     Route: 051
  21. NERISONA [Concomitant]
     Dosage: UNK
     Route: 051
  22. NIZORAL [Concomitant]
     Indication: ECZEMA
     Dosage: UNK
     Route: 061
  23. NIZORAL [Concomitant]
     Dosage: UNK
     Route: 061
  24. DIFLUPREDNATE [Concomitant]
     Indication: ECZEMA
     Dosage: UNK, UNKNOWN
     Route: 061
  25. TALION (BEPOTASTINE BESYLATE) [Concomitant]
     Indication: PROPHYLAXIS
     Dosage: 10 MG, QD
     Route: 048
     Dates: start: 20120221
  26. MK-1459B [Concomitant]
     Indication: ECZEMA
     Dosage: UNK, UNKNOWN
     Route: 061
  27. XYZAL [Concomitant]
     Indication: PRODUCT USED FOR UNKNOWN INDICATION
     Dosage: 5 MG, QD
     Route: 048
     Dates: start: 20120404
  28. ANTEBATE [Concomitant]
     Indication: PRODUCT USED FOR UNKNOWN INDICATION
     Dosage: UNK, UNKNOWN
     Route: 061
     Dates: start: 20120404
  29. HIRUDOID [Concomitant]
     Indication: PRODUCT USED FOR UNKNOWN INDICATION
     Dosage: UNK, UNKNOWN
     Route: 061
     Dates: start: 20120404
  30. WARFARIN POTASSIUM [Concomitant]
     Indication: CEREBRAL INFARCTION
     Dosage: 2.75 MG, QD
     Route: 048
     Dates: start: 20120419, end: 20120425
  31. ATARAX P [Concomitant]
     Indication: PRODUCT USED FOR UNKNOWN INDICATION
     Dosage: 25 MG, QD
     Route: 048
     Dates: start: 20120411
  32. ZYLORIC [Concomitant]
     Indication: PRODUCT USED FOR UNKNOWN INDICATION
     Dosage: 100 MG, QD
     Route: 048
     Dates: start: 20120411, end: 20120424
  33. WARFARIN POTASSIUM [Concomitant]
     Indication: CEREBRAL INFARCTION
     Dosage: 3.25 MG, QD
     Route: 048
     Dates: start: 20120426
  34. TELAVIC [Suspect]
     Indication: HEPATITIS C
     Dosage: 2250 MG, ONCE
     Route: 048
     Dates: start: 20120222, end: 20120302
  35. TELAVIC [Suspect]
     Dosage: 1500 MG, ONCE
     Route: 048
     Dates: start: 20120303, end: 20120328
  36. TELAVIC [Suspect]
     Dosage: 1000 MG, ONCE
     Route: 048
     Dates: start: 20120329, end: 20120411
  37. WARFARIN POTASSIUM [Concomitant]
     Indication: CEREBRAL INFARCTION
     Dosage: 3.25 MG, ONCE
     Route: 048
     Dates: end: 20120404
  38. WARFARIN POTASSIUM [Concomitant]
     Dosage: 2.25 MG, ONCE
     Route: 048
     Dates: start: 20120405, end: 20120418
  39. WARFARIN POTASSIUM [Concomitant]
     Dosage: 2.75 MG, ONCE
     Route: 048
     Dates: start: 20120419, end: 20120425
  40. WARFARIN POTASSIUM [Concomitant]
     Dosage: 3.25 MG, ONCE
     Route: 048
     Dates: start: 20120426
  41. NORVASC OD [Concomitant]
     Indication: HYPERTENSION
     Dosage: 10 MG, ONCE
     Route: 048
     Dates: end: 20120318
  42. NORVASC OD [Concomitant]
     Dosage: 5 MG, ONCE
     Route: 048
     Dates: start: 20120319
  43. LOCHOL (FLUVASTATIN SODIUM) [Concomitant]
     Indication: CEREBRAL INFARCTION
     Route: 048
  44. ECARD HD [Concomitant]
     Indication: HYPERTENSION
     Dosage: MIXTURE
     Route: 048
  45. MYSER (DIFLUPREDNATE) [Concomitant]
     Indication: ECZEMA
     Dosage: PROPER QUANTITY
     Route: 061
  46. RINDERON A [Concomitant]
     Indication: ECZEMA
     Dosage: PROPER QUANTITY
     Route: 061
  47. TALION (BEPOTASTINE BESYLATE) [Concomitant]
     Indication: PROPHYLAXIS
     Dosage: 10 MG, ONCE
     Route: 048
     Dates: start: 20120221, end: 20120403

REACTIONS (1)
  - Decreased appetite [Recovered/Resolved]
